FAERS Safety Report 15604964 (Version 2)
Quarter: 2018Q4

REPORT INFORMATION
  Report Type: Report from Study
  Country: None (occurrence: US)
  Receive Date: 20181111
  Receipt Date: 20181217
  Transmission Date: 20190205
  Serious: Yes (Other)
  Sender: FDA-Public Use
  Company Number: US-ABBVIE-18K-163-2545508-00

PATIENT
  Age: 18 Year
  Sex: Female
  Weight: 57.5 kg

DRUGS (6)
  1. MELOXICAM. [Concomitant]
     Active Substance: MELOXICAM
     Indication: JUVENILE IDIOPATHIC ARTHRITIS
  2. HUMIRA [Suspect]
     Active Substance: ADALIMUMAB
     Indication: JUVENILE IDIOPATHIC ARTHRITIS
     Route: 058
     Dates: start: 201310, end: 201706
  3. HUMIRA [Suspect]
     Active Substance: ADALIMUMAB
     Route: 058
     Dates: start: 2018, end: 201811
  4. PREDNISONE. [Concomitant]
     Active Substance: PREDNISONE
     Indication: JUVENILE IDIOPATHIC ARTHRITIS
  5. HUMIRA [Suspect]
     Active Substance: ADALIMUMAB
     Indication: JUVENILE IDIOPATHIC ARTHRITIS
     Route: 058
     Dates: start: 201706, end: 2017
  6. HUMIRA [Suspect]
     Active Substance: ADALIMUMAB
     Route: 058
     Dates: start: 20171017, end: 20180904

REACTIONS (4)
  - Drug ineffective [Recovered/Resolved]
  - Malignant melanoma [Recovered/Resolved]
  - Joint range of motion decreased [Recovered/Resolved]
  - Musculoskeletal deformity [Recovered/Resolved]

NARRATIVE: CASE EVENT DATE: 201707
